FAERS Safety Report 8203861-3 (Version None)
Quarter: 2012Q1

REPORT INFORMATION
  Report Type: 
  Country: None (occurrence: None)
  Receive Date: 20120313
  Receipt Date: 20120305
  Transmission Date: 20120608
  Serious: Yes (Other)
  Sender: FDA-Public Use
  Company Number: CA-UCBSA-047319

PATIENT
  Age: 53 Year
  Sex: Female

DRUGS (14)
  1. FOLIC ACID [Concomitant]
     Route: 048
  2. CALCIUM WITH VITAMIN D [Concomitant]
     Dosage: UNKNOWN DOSE
     Route: 048
  3. METHOTREXATE [Concomitant]
     Indication: RHEUMATOID ARTHRITIS
     Route: 048
     Dates: start: 20090101
  4. RAN CITALO [Concomitant]
     Route: 048
  5. GLUCOSAMINE WITH MSM [Concomitant]
     Dosage: UNKNOWN DOSE
     Route: 048
  6. CIMBALTA [Concomitant]
     Route: 048
  7. CIMZIA [Suspect]
     Indication: RHEUMATOID ARTHRITIS
     Route: 058
     Dates: start: 20100725
  8. ATIVAN [Concomitant]
     Indication: SLEEP DISORDER
     Dosage: UNKNOWN DOSE
     Route: 048
  9. INDOMETHACIN [Concomitant]
     Route: 048
  10. CIMZIA [Suspect]
     Route: 058
     Dates: start: 20100613, end: 20100711
  11. PREDNISONE [Concomitant]
     Indication: RHEUMATOID ARTHRITIS
     Dosage: DOSE:TITRATE ONCE DAILY
     Route: 048
  12. LYRICA [Concomitant]
     Dosage: DOSE:UNK , EVERY NIGHT AT BED TIME
     Route: 048
  13. HYDROXYZIN [Concomitant]
     Route: 048
  14. ASCORBIC ACID [Concomitant]
     Dosage: UNKNOWN DOSE
     Route: 048

REACTIONS (5)
  - VULVOVAGINAL MYCOTIC INFECTION [None]
  - FIBROMYALGIA [None]
  - URINARY TRACT INFECTION [None]
  - WHITE BLOOD CELL COUNT DECREASED [None]
  - VAGINAL DISCHARGE [None]
